FAERS Safety Report 16993459 (Version 1)
Quarter: 2019Q4

REPORT INFORMATION
  Report Type: Spontaneous
  Country: ES (occurrence: ES)
  Receive Date: 20191105
  Receipt Date: 20191105
  Transmission Date: 20200122
  Serious: Yes (Disabling)
  Sender: FDA-Public Use
  Company Number: ES-IPSEN BIOPHARMACEUTICALS, INC.-2019-19714

PATIENT
  Age: 65 Year
  Sex: Female

DRUGS (2)
  1. DYSPORT [Suspect]
     Active Substance: ABOBOTULINUMTOXINA
     Indication: MUSCLE SPASTICITY
  2. DYSPORT [Suspect]
     Active Substance: ABOBOTULINUMTOXINA
     Indication: MUSCLE SPASTICITY
     Dosage: 750 UNITS
     Route: 065
     Dates: start: 201902, end: 201902

REACTIONS (4)
  - Dyspnoea [Unknown]
  - Fatigue [Unknown]
  - Asthenia [Recovering/Resolving]
  - Bedridden [Unknown]
